FAERS Safety Report 13925442 (Version 1)
Quarter: 2017Q3

REPORT INFORMATION
  Report Type: Spontaneous
  Country: US (occurrence: US)
  Receive Date: 20170831
  Receipt Date: 20170831
  Transmission Date: 20171127
  Serious: Yes (Other)
  Sender: FDA-Public Use
  Company Number: US-NOVOPROD-561102

PATIENT
  Age: 75 Year
  Sex: Female

DRUGS (1)
  1. LEVEMIR [Suspect]
     Active Substance: INSULIN DETEMIR
     Indication: TYPE 2 DIABETES MELLITUS
     Dosage: 17 U, QD
     Route: 058
     Dates: start: 20170305

REACTIONS (5)
  - Cataract [Not Recovered/Not Resolved]
  - Gastric dilatation [Unknown]
  - Eye oedema [Not Recovered/Not Resolved]
  - Retinal oedema [Not Recovered/Not Resolved]
  - Muscular weakness [Not Recovered/Not Resolved]
